FAERS Safety Report 14960058 (Version 3)
Quarter: 2018Q2

REPORT INFORMATION
  Report Type: Report from Study
  Country: None (occurrence: US)
  Receive Date: 20180531
  Receipt Date: 20180614
  Transmission Date: 20180711
  Serious: Yes (Hospitalization)
  Sender: FDA-Public Use
  Company Number: US-ABBVIE-18K-163-2372509-00

PATIENT
  Age: 17 Year
  Sex: Male

DRUGS (4)
  1. HUMIRA [Suspect]
     Active Substance: ADALIMUMAB
     Dosage: DAY 15
     Route: 058
     Dates: start: 20171226, end: 20171226
  2. HUMIRA [Suspect]
     Active Substance: ADALIMUMAB
     Indication: CROHN^S DISEASE
     Dosage: DAY 1
     Route: 058
     Dates: start: 20171212, end: 20171212
  3. HUMIRA [Suspect]
     Active Substance: ADALIMUMAB
     Dosage: DAY  29
     Route: 058
     Dates: start: 20180109, end: 2018
  4. HUMIRA [Suspect]
     Active Substance: ADALIMUMAB
     Route: 058
     Dates: start: 20180530

REACTIONS (6)
  - Gastrointestinal inflammation [Unknown]
  - Chills [Unknown]
  - Diarrhoea [Unknown]
  - Pyrexia [Unknown]
  - Hyperhidrosis [Unknown]
  - Abdominal pain [Unknown]

NARRATIVE: CASE EVENT DATE: 201805
